FAERS Safety Report 23348092 (Version 1)
Quarter: 2023Q4

REPORT INFORMATION
  Report Type: Spontaneous
  Country: NL (occurrence: NL)
  Receive Date: 20231228
  Receipt Date: 20231228
  Transmission Date: 20240109
  Serious: Yes (Hospitalization)
  Sender: FDA-Public Use
  Company Number: NL-SANDOZ-SDZ2023NL062130

PATIENT
  Age: 69 Year
  Sex: Female
  Weight: 85.8 kg

DRUGS (8)
  1. SUNITINIB [Suspect]
     Active Substance: SUNITINIB
     Indication: Gastrointestinal stromal tumour
     Dosage: 37.5 MILLIGRAM
     Route: 048
     Dates: start: 20230927, end: 20231023
  2. SUNITINIB [Suspect]
     Active Substance: SUNITINIB
     Dosage: 25 MILLIGRAM, QD
     Route: 048
     Dates: start: 20231022
  3. BISOPROLOL [Suspect]
     Active Substance: BISOPROLOL\BISOPROLOL FUMARATE
     Indication: Supraventricular extrasystoles
     Dosage: 2.5 MILLIGRAM
     Route: 048
     Dates: start: 2020, end: 20231024
  4. POLYETHYLENE GLYCOLS [Concomitant]
     Active Substance: POLYETHYLENE GLYCOLS
     Indication: Constipation
     Dosage: UNK UNK, PRN
     Route: 048
     Dates: start: 20230926
  5. METFORMIN HYDROCHLORIDE [Concomitant]
     Active Substance: METFORMIN HYDROCHLORIDE
     Indication: Type 2 diabetes mellitus
     Dosage: 1000 MILLIGRAM
     Route: 048
     Dates: start: 20211027
  6. APIXABAN [Concomitant]
     Active Substance: APIXABAN
     Indication: Superficial vein thrombosis
     Dosage: 10 MILLIGRAM
     Route: 048
     Dates: start: 20211216
  7. FAMOTIDINE [Concomitant]
     Active Substance: FAMOTIDINE
     Indication: Dyspepsia
     Dosage: 80 MILLIGRAM
     Route: 048
     Dates: start: 20231003
  8. BASAGLAR [Concomitant]
     Active Substance: INSULIN GLARGINE
     Indication: Type 2 diabetes mellitus
     Dosage: 20 UNITS
     Route: 058
     Dates: start: 20230926

REACTIONS (3)
  - Malaise [Recovered/Resolved]
  - Candida infection [Recovered/Resolved]
  - Orthostatic hypotension [Unknown]

NARRATIVE: CASE EVENT DATE: 20231009
